FAERS Safety Report 5930163-8 (Version None)
Quarter: 2008Q4

REPORT INFORMATION
  Report Type: 
  Country: None (occurrence: None)
  Receive Date: 20081009
  Receipt Date: 20080315
  Transmission Date: 20090506
  Serious: Yes (Hospitalization, Other)
  Sender: FDA-Public Use
  Company Number: PHEH2008US02280

PATIENT
  Age: 82 Year
  Sex: Male

DRUGS (3)
  1. ZOMETA [Suspect]
     Indication: OSTEOLYSIS
     Dosage: 4 MG, MONTHLY, INTRAVENOUS
     Route: 042
     Dates: start: 20080101, end: 20080222
  2. ZOMETA [Suspect]
     Indication: PROPHYLAXIS
     Dosage: 4 MG, MONTHLY, INTRAVENOUS
     Route: 042
     Dates: start: 20080101, end: 20080222
  3. BICALUTAMIDE [Concomitant]

REACTIONS (4)
  - CELLULITIS ORBITAL [None]
  - CORNEAL OEDEMA [None]
  - SCLERITIS [None]
  - UVEITIS [None]
